FAERS Safety Report 8133725-5 (Version None)
Quarter: 2012Q1

REPORT INFORMATION
  Report Type: 
  Country: None (occurrence: None)
  Receive Date: 20120213
  Receipt Date: 20120130
  Transmission Date: 20120608
  Serious: Yes (Other)
  Sender: FDA-Public Use
  Company Number: JP-ROCHE-1037372

PATIENT
  Sex: Female
  Weight: 58.566 kg

DRUGS (5)
  1. ZYRTEC [Concomitant]
  2. PULMICORT-100 [Concomitant]
  3. MONTELUKAST SODIUM [Concomitant]
  4. OMALIZUMAB [Suspect]
     Indication: ASTHMA
  5. HOKUNALIN [Concomitant]

REACTIONS (1)
  - ANAPHYLACTIC REACTION [None]
